FAERS Safety Report 7758648-2 (Version None)
Quarter: 2011Q3

REPORT INFORMATION
  Report Type: 
  Country: None (occurrence: None)
  Receive Date: 20110919
  Receipt Date: 20110905
  Transmission Date: 20111222
  Serious: Yes (Congenital Anomaly)
  Sender: FDA-Public Use
  Company Number: BR-NOVOPROD-334952

PATIENT

DRUGS (4)
  1. NOVORAPID FLEXPEN [Suspect]
     Indication: MATERNAL EXPOSURE DURING PREGNANCY
     Dosage: UNK
     Route: 064
  2. NOVORAPID FLEXPEN [Suspect]
     Dosage: UNK
     Route: 064
  3. T4 [Concomitant]
     Dosage: UNK
     Route: 064
  4. LEVEMIR [Suspect]
     Indication: MATERNAL EXPOSURE DURING PREGNANCY
     Dosage: UNK
     Route: 064

REACTIONS (4)
  - MICROCEPHALY [None]
  - FOETAL MALFORMATION [None]
  - EAR MALFORMATION [None]
  - HYPERTELORISM OF ORBIT [None]
